FAERS Safety Report 4262194-0 (Version None)
Quarter: 2004Q1

REPORT INFORMATION
  Report Type: 
  Country: None (occurrence: None)
  Receive Date: 20040102
  Receipt Date: 20030822
  Transmission Date: 20041129
  Serious: Yes (Death, Life-Threatening, Hospitalization)
  Sender: FDA-Public Use
  Company Number: WAES 0308SWE00010

PATIENT
  Age: 85 Year
  Sex: Female

DRUGS (11)
  1. [THERAPY UNSPECIFIED] [Concomitant]
  2. ACETAMINOPHEN [Concomitant]
  3. ASPIRIN [Suspect]
     Route: 048
     Dates: end: 20021208
  4. BEZAFIBRATE [Concomitant]
  5. CARVEDILOL [Concomitant]
  6. CITALOPRAM HYDROBROMIDE [Suspect]
     Indication: DEPRESSION
     Route: 048
     Dates: end: 20021209
  7. ESTRADIOL [Concomitant]
  8. ESTRIOL [Concomitant]
  9. FUROSEMIDE [Concomitant]
  10. LISINOPRIL [Concomitant]
  11. VIOXX [Suspect]
     Route: 048
     Dates: end: 20021208

REACTIONS (1)
  - SUBARACHNOID HAEMORRHAGE [None]
